FAERS Safety Report 8910137 (Version 1)
Quarter: 2012Q4

REPORT INFORMATION
  Report Type: 
  Country: DE (occurrence: FR)
  Receive Date: 20121115
  Receipt Date: 20121115
  Transmission Date: 20130627
  Serious: Yes (Life-Threatening, Hospitalization, Other)
  Sender: FDA-Public Use
  Company Number: FR-BRISTOL-MYERS SQUIBB COMPANY-17048786

PATIENT
  Age: 69 Year
  Sex: Female

DRUGS (6)
  1. GLUCOPHAGE [Suspect]
     Dates: start: 20120712, end: 20120802
  2. FLUDEX [Interacting]
     Dosage: 1Df=1.5mg,Prolonged-release tablet.
     Route: 048
     Dates: end: 20120803
  3. PERINDOPRIL [Interacting]
     Dosage: 1DF=4mg
Perindopril arrow
     Route: 048
     Dates: end: 20120803
  4. PARIET [Concomitant]
     Dosage: 20mg tablet
     Route: 048
  5. TAHOR [Concomitant]
     Dosage: 10mg Tablet
     Route: 048
  6. PLAVIX TABS [Concomitant]
     Route: 048

REACTIONS (3)
  - Lactic acidosis [Recovered/Resolved]
  - Drug interaction [Unknown]
  - Renal failure [None]
